FAERS Safety Report 6897078-2 (Version None)
Quarter: 2010Q3

REPORT INFORMATION
  Report Type: 
  Country: None (occurrence: None)
  Receive Date: 20100802
  Receipt Date: 20070403
  Transmission Date: 20110219
  Serious: No
  Sender: FDA-Public Use
  Company Number: US-PFIZER INC-2007027207

PATIENT
  Sex: Female
  Weight: 56.2 kg

DRUGS (2)
  1. LYRICA [Suspect]
     Indication: NEURALGIA
     Dosage: INTERVAL: EVERYDAY
     Dates: start: 20070101
  2. CLONAZEPAM [Concomitant]
     Dates: start: 20061001

REACTIONS (1)
  - ALOPECIA [None]
